FAERS Safety Report 18493101 (Version 1)
Quarter: 2020Q4

REPORT INFORMATION
  Report Type: Report from Study
  Country: US (occurrence: US)
  Receive Date: 20201111
  Receipt Date: 20201111
  Transmission Date: 20210114
  Serious: Yes (Hospitalization, Other)
  Sender: FDA-Public Use
  Company Number: US-JNJFOC-20201050186

PATIENT
  Age: 72 Year
  Sex: Male

DRUGS (16)
  1. ACETAMINOPHEN. [Concomitant]
     Active Substance: ACETAMINOPHEN
     Dates: start: 20150128
  2. APIXABAN [Concomitant]
     Active Substance: APIXABAN
     Dates: start: 20181119
  3. DIGOXIN. [Concomitant]
     Active Substance: DIGOXIN
     Dates: start: 20150128
  4. SELEXIPAG [Suspect]
     Active Substance: SELEXIPAG
     Indication: PULMONARY ARTERIAL HYPERTENSION
     Route: 048
     Dates: start: 20190621, end: 20200420
  5. OXYGEN. [Concomitant]
     Active Substance: OXYGEN
     Dates: start: 20151022
  6. PRAVASTATIN. [Concomitant]
     Active Substance: PRAVASTATIN
     Dates: start: 20061221
  7. SPIRONOLACTONE. [Concomitant]
     Active Substance: SPIRONOLACTONE
     Dates: start: 20181119
  8. CHOLECALCIFEROL [Concomitant]
     Active Substance: CHOLECALCIFEROL
     Dates: start: 20170106
  9. DILTIAZEM. [Concomitant]
     Active Substance: DILTIAZEM
     Dates: start: 20190529
  10. MOMETASONE [Concomitant]
     Active Substance: MOMETASONE
     Dates: start: 20160826
  11. ASPRIN [Concomitant]
     Active Substance: ASPIRIN
     Dates: start: 20051014
  12. OMEPRAZOLE. [Concomitant]
     Active Substance: OMEPRAZOLE
     Dates: start: 20170913
  13. ALBUTEROL                          /00139501/ [Concomitant]
     Active Substance: ALBUTEROL
     Dates: start: 20130510
  14. ALLOPURINOL. [Concomitant]
     Active Substance: ALLOPURINOL
     Dates: start: 20160826
  15. TIOTROPIUM [Concomitant]
     Active Substance: TIOTROPIUM
     Dates: start: 20170324
  16. BUMETANIDE. [Concomitant]
     Active Substance: BUMETANIDE
     Dates: start: 20200316

REACTIONS (2)
  - Right ventricular failure [Recovered/Resolved]
  - Iron deficiency anaemia [Recovered/Resolved]

NARRATIVE: CASE EVENT DATE: 202003
